FAERS Safety Report 5889886-1 (Version None)
Quarter: 2008Q3

REPORT INFORMATION
  Report Type: 
  Country: None (occurrence: None)
  Receive Date: 20080919
  Receipt Date: 20080911
  Transmission Date: 20090109
  Serious: Yes (Death, Hospitalization)
  Sender: FDA-Public Use
  Company Number: US-GENENTECH-267845

PATIENT
  Sex: Female
  Weight: 66.667 kg

DRUGS (6)
  1. BEVACIZUMAB [Suspect]
     Indication: BREAST CANCER METASTATIC
     Dosage: 10 MG/KG, Q2W
     Dates: start: 20071213
  2. HERCEPTIN [Suspect]
     Indication: DRUG USE FOR UNKNOWN INDICATION
     Dosage: UNK
     Dates: end: 20080124
  3. ARIMIDEX [Concomitant]
     Indication: BREAST CANCER METASTATIC
     Dosage: 1 MG, QD
     Route: 048
     Dates: start: 20071213
  4. LISINOPRIL [Concomitant]
     Indication: HYPERTENSION
  5. SPIRONOLACTONE [Concomitant]
     Indication: HYPERTENSION
  6. COREG [Concomitant]

REACTIONS (1)
  - HAEMORRHAGE INTRACRANIAL [None]
